FAERS Safety Report 18272060 (Version 1)
Quarter: 2020Q3

REPORT INFORMATION
  Report Type: Report from Study
  Country: None (occurrence: US)
  Receive Date: 20200916
  Receipt Date: 20200916
  Transmission Date: 20201103
  Serious: Yes (Disabling)
  Sender: FDA-Public Use
  Company Number: US-ABBVIE-20K-163-3564475-00

PATIENT
  Sex: Male

DRUGS (1)
  1. HUMIRA [Suspect]
     Active Substance: ADALIMUMAB
     Indication: CROHN^S DISEASE
     Dosage: CITRATE FREE
     Route: 058

REACTIONS (7)
  - Nerve injury [Unknown]
  - Diabetes mellitus [Unknown]
  - Disability [Not Recovered/Not Resolved]
  - Bronchitis [Unknown]
  - Musculoskeletal disorder [Unknown]
  - Increased tendency to bruise [Unknown]
  - Pain [Unknown]
